FAERS Safety Report 5023622-6 (Version None)
Quarter: 2006Q2

REPORT INFORMATION
  Report Type: 
  Country: None (occurrence: None)
  Receive Date: 20060606
  Receipt Date: 20060519
  Transmission Date: 20061013
  Serious: Yes (Hospitalization)
  Sender: FDA-Public Use
  Company Number: 225663

PATIENT
  Sex: Female

DRUGS (6)
  1. HERCEPTIN [Suspect]
     Indication: BREAST CANCER
     Dosage: 420 MG, QD, INTRAVENOUS
     Route: 042
     Dates: start: 20060309, end: 20060309
  2. XELODA [Suspect]
     Indication: BREAST CANCER
     Dosage: 2 G, X2, ORAL
     Route: 048
     Dates: start: 20060309, end: 20060320
  3. SUPROFEN(SUPROFEN) [Suspect]
     Indication: DRUG USE FOR UNKNOWN INDICATION
     Dosage: 50 MG, UNK, ORAL
     Route: 048
     Dates: end: 20060322
  4. XELODA [Suspect]
     Indication: BREAST CANCER
     Dosage: 2G, X2, ORAL
     Route: 048
     Dates: start: 20060309, end: 20060320
  5. SUPROFEN(SUPROFEN) [Suspect]
     Indication: DRUG USE FOR UNKNOWN INDICATION
     Dosage: 50 MG, UNK, ORAL
     Route: 048
     Dates: end: 20060322
  6. TRAMADOL HCL [Suspect]
     Indication: DRUG USE FOR UNKNOWN INDICATION
     Dosage: 50 MG, UNK, ORAL
     Route: 048
     Dates: end: 20060322

REACTIONS (2)
  - OEDEMA PERIPHERAL [None]
  - PURPURA [None]
